FAERS Safety Report 25774274 (Version 1)
Quarter: 2025Q3

REPORT INFORMATION
  Report Type: Spontaneous
  Country: US (occurrence: None)
  Receive Date: 20250908
  Receipt Date: 20250908
  Transmission Date: 20251020
  Serious: No
  Sender: FDA-CTU
  Company Number: None

PATIENT
  Age: 35 Year
  Sex: Male

DRUGS (1)
  1. BIKTARVY [Suspect]
     Active Substance: BICTEGRAVIR SODIUM\EMTRICITABINE\TENOFOVIR ALAFENAMIDE FUMARATE
     Indication: HIV infection
     Dosage: OTHER STRENGTH : 50/200/25 MG ;?FREQUENCY : DAILY;?
     Route: 048
     Dates: start: 20240809

REACTIONS (4)
  - Decreased appetite [None]
  - Weight decreased [None]
  - Flank pain [None]
  - Renal impairment [None]

NARRATIVE: CASE EVENT DATE: 20250601
